FAERS Safety Report 8771081 (Version 1)
Quarter: 2012Q4

REPORT INFORMATION
  Report Type: 
  Country: US (occurrence: US)
  Receive Date: 20120906
  Receipt Date: 20120906
  Transmission Date: 20130627
  Serious: No
  Sender: FDA-Public Use
  Company Number: US-PFIZER INC-2012215004

PATIENT
  Sex: Female

DRUGS (2)
  1. DETROL LA [Suspect]
     Dosage: UNK
  2. MOTRIN [Suspect]
     Dosage: UNK

REACTIONS (2)
  - Feeling jittery [Recovered/Resolved]
  - Eructation [Recovered/Resolved]
